FAERS Safety Report 21426005 (Version 5)
Quarter: 2022Q4

REPORT INFORMATION
  Report Type: Report from Study
  Country: US (occurrence: US)
  Receive Date: 20221008
  Receipt Date: 20221224
  Transmission Date: 20230112
  Serious: Yes (Other)
  Sender: FDA-Public Use
  Company Number: US-NOVARTISTESTPH-NVSC2022US225607

PATIENT
  Sex: Female

DRUGS (2)
  1. ENTRESTO [Suspect]
     Active Substance: SACUBITRIL\VALSARTAN
     Indication: Product used for unknown indication
     Dosage: 50 MG, BID (24/26MG; 24.3 MG SACUBITRIL AND 25.7 MG VALSARTAN)
     Route: 065
  2. ENTRESTO [Suspect]
     Active Substance: SACUBITRIL\VALSARTAN
     Dosage: 50 MG, BID (24/26MG; 24.3 MG SACUBITRIL AND 25.7 MG VALSARTAN)
     Route: 065

REACTIONS (5)
  - Thrombosis [Unknown]
  - Rhinorrhoea [Unknown]
  - Throat irritation [Unknown]
  - Bone pain [Unknown]
  - Hypersensitivity [Unknown]
